FAERS Safety Report 25617479 (Version 1)
Quarter: 2025Q3

REPORT INFORMATION
  Report Type: Spontaneous
  Country: US (occurrence: US)
  Receive Date: 20250729
  Receipt Date: 20250729
  Transmission Date: 20251020
  Serious: No
  Sender: ABBVIE
  Company Number: US-ABBVIE-6388088

PATIENT
  Age: 48 Year

DRUGS (2)
  1. HUMIRA [Suspect]
     Active Substance: ADALIMUMAB
     Indication: Rheumatoid arthritis
     Route: 058
  2. HUMIRA [Suspect]
     Active Substance: ADALIMUMAB
     Indication: Uveitis

REACTIONS (4)
  - Injection site discharge [Not Recovered/Not Resolved]
  - Drug hypersensitivity [Unknown]
  - Fear [Unknown]
  - Nervousness [Unknown]

NARRATIVE: CASE EVENT DATE: 20250722
